FAERS Safety Report 8934551 (Version 1)
Quarter: 2012Q4

REPORT INFORMATION
  Report Type: 
  Country: US (occurrence: US)
  Receive Date: 20121129
  Receipt Date: 20121129
  Transmission Date: 20130627
  Serious: Yes (Other)
  Sender: FDA-Public Use
  Company Number: US-BAYER-2012-125010

PATIENT
  Age: 45 Year
  Sex: Female
  Weight: 54.42 kg

DRUGS (7)
  1. BETASERON [Suspect]
     Dosage: 0.25 mg, QOD
     Route: 058
  2. COUMADIN [Concomitant]
     Dosage: 1 mg, UNK
  3. TEGRETOL [Concomitant]
     Dosage: 200 mg, UNK
  4. BACLOFEN [Concomitant]
     Dosage: 10 mg, UNK
  5. VITAMIN D [Concomitant]
     Dosage: 1000UNIT
  6. IRON [Concomitant]
     Dosage: 325 mg, UNK
  7. VITAMIN B12 [Concomitant]
     Dosage: 1000CR

REACTIONS (3)
  - Deep vein thrombosis [Unknown]
  - Injection site erythema [Unknown]
  - Pain [Unknown]
